FAERS Safety Report 7375993-3 (Version None)
Quarter: 2011Q1

REPORT INFORMATION
  Report Type: 
  Country: None (occurrence: None)
  Receive Date: 20110325
  Receipt Date: 20110314
  Transmission Date: 20110831
  Serious: Yes (Hospitalization)
  Sender: FDA-Public Use
  Company Number: CA-JNJFOC-20110307309

PATIENT
  Sex: Male
  Weight: 82 kg

DRUGS (10)
  1. REMICADE [Suspect]
     Dosage: 5TH INFUSION
     Route: 042
  2. REMICADE [Suspect]
     Route: 042
  3. IRON [Concomitant]
     Route: 048
  4. VITALUX NOS [Concomitant]
     Route: 050
  5. ACEBUTOLOL [Concomitant]
     Route: 048
  6. ENALAPRIL MALEATE [Concomitant]
     Route: 048
  7. IMIPRAMINE [Concomitant]
     Route: 048
  8. REMICADE [Suspect]
     Indication: PSORIASIS
     Route: 042
  9. CENTRUM MULTIVITAMINS [Concomitant]
     Route: 048
  10. ATORVASTATIN CALCIUM [Concomitant]
     Route: 048

REACTIONS (2)
  - ABASIA [None]
  - SCIATICA [None]
